FAERS Safety Report 5833917-1 (Version None)
Quarter: 2008Q3

REPORT INFORMATION
  Report Type: 
  Country: None (occurrence: None)
  Receive Date: 20080731
  Receipt Date: 20080717
  Transmission Date: 20090109
  Serious: Yes (Death)
  Sender: FDA-Public Use
  Company Number: 2008AL006617

PATIENT
  Age: 88 Year
  Sex: Male
  Weight: 46.7205 kg

DRUGS (3)
  1. DIGOXIN [Suspect]
     Dosage: 0.125MG
     Route: 048
  2. SPIRONOLACTONE [Concomitant]
  3. ENALAPRIL [Concomitant]

REACTIONS (3)
  - CARDIAC FAILURE [None]
  - NAUSEA [None]
  - PNEUMONIA [None]
